FAERS Safety Report 9817511 (Version 5)
Quarter: 2014Q2

REPORT INFORMATION
  Report Type: Report from Study
  Country: US (occurrence: US)
  Receive Date: 20140115
  Receipt Date: 20140611
  Transmission Date: 20141212
  Serious: Yes (Hospitalization)
  Sender: FDA-Public Use
  Company Number: US-BRISTOL-MYERS SQUIBB COMPANY-19989029

PATIENT
  Age: 55 Year
  Sex: Female

DRUGS (6)
  1. IPILIMUMAB [Suspect]
     Indication: OVARIAN CANCER
     Route: 042
     Dates: start: 20131120
  2. AMLODIPINE [Concomitant]
     Route: 048
  3. PROZAC [Concomitant]
     Route: 048
  4. IBUPROFEN [Concomitant]
     Route: 048
  5. OXYCODONE [Concomitant]
     Route: 048
  6. ATIVAN [Concomitant]
     Route: 048

REACTIONS (1)
  - Hypercalcaemia [Unknown]
